FAERS Safety Report 8114284-X (Version None)
Quarter: 2012Q1

REPORT INFORMATION
  Report Type: 
  Country: None (occurrence: None)
  Receive Date: 20120206
  Receipt Date: 20120126
  Transmission Date: 20120608
  Serious: Yes (Hospitalization)
  Sender: FDA-Public Use
  Company Number: US-BIOGENIDEC-2009BI042169

PATIENT
  Age: 30 Year
  Sex: Female
  Weight: 53 kg

DRUGS (8)
  1. AVONEX [Suspect]
     Route: 030
     Dates: end: 20080101
  2. AVONEX [Suspect]
     Route: 030
     Dates: start: 20110701
  3. AVONEX [Suspect]
     Indication: MULTIPLE SCLEROSIS
     Route: 030
     Dates: start: 20020906, end: 20040301
  4. COPAXONE [Concomitant]
  5. MEDICATIONS (NOS) [Concomitant]
  6. AVONEX [Suspect]
     Route: 030
     Dates: start: 20090228, end: 20100901
  7. REBIF [Concomitant]
     Indication: MULTIPLE SCLEROSIS
  8. AVONEX [Suspect]
     Route: 030
     Dates: start: 20110429

REACTIONS (18)
  - ABASIA [None]
  - MENTAL IMPAIRMENT [None]
  - PROCEDURAL PAIN [None]
  - CONVULSION [None]
  - DRUG HYPERSENSITIVITY [None]
  - OVERWEIGHT [None]
  - ABDOMINAL ABSCESS [None]
  - TRIGEMINAL NEURALGIA [None]
  - OVARIAN CYST [None]
  - APHASIA [None]
  - ULCER [None]
  - PANCREATITIS [None]
  - HERNIA [None]
  - INTESTINAL PERFORATION [None]
  - OVERDOSE [None]
  - FLUID RETENTION [None]
  - PELVIC SEPSIS [None]
  - DRUG ABUSE [None]
